FAERS Safety Report 10142248 (Version 1)
Quarter: 2014Q2

REPORT INFORMATION
  Report Type: Spontaneous
  Country: IL (occurrence: IL)
  Receive Date: 20140429
  Receipt Date: 20140429
  Transmission Date: 20141212
  Serious: No
  Sender: FDA-Public Use
  Company Number: IL-009507513-1404ISR014030

PATIENT
  Sex: Female

DRUGS (1)
  1. FOSALAN [Suspect]
     Dosage: UNK
     Route: 048

REACTIONS (2)
  - Necrosis [Unknown]
  - Tooth disorder [Unknown]
